FAERS Safety Report 8779490 (Version 1)
Quarter: 2012Q4

REPORT INFORMATION
  Report Type: 
  Country: US (occurrence: US)
  Receive Date: 20120912
  Receipt Date: 20120912
  Transmission Date: 20130627
  Serious: Yes (Hospitalization, Other)
  Sender: FDA-Public Use
  Company Number: US-JNJFOC-20120901903

PATIENT
  Age: 16 Year
  Sex: Female

DRUGS (1)
  1. IBUPROFEN [Suspect]
     Indication: SUICIDE ATTEMPT
     Dosage: 300-350 tablets of 200 mg/tablet (60-70 g)
     Route: 048

REACTIONS (12)
  - Depressed level of consciousness [Unknown]
  - Overdose [Unknown]
  - Suicide attempt [Unknown]
  - Loss of consciousness [Unknown]
  - Metabolic acidosis [Unknown]
  - Electrocardiogram QT prolonged [Unknown]
  - Hypotension [Recovering/Resolving]
  - Hyperprolactinaemia [Unknown]
  - Vomiting [Unknown]
  - Heart rate increased [None]
  - Blood sodium increased [None]
  - Intentional overdose [None]
